FAERS Safety Report 21888032 (Version 2)
Quarter: 2023Q1

REPORT INFORMATION
  Report Type: Spontaneous
  Country: US (occurrence: US)
  Receive Date: 20230120
  Receipt Date: 20230220
  Transmission Date: 20230418
  Serious: No
  Sender: FDA-Public Use
  Company Number: US-SA-SAC20230118000827

PATIENT
  Age: 19 Year
  Sex: Male
  Weight: 74 kg

DRUGS (6)
  1. DUPIXENT [Suspect]
     Active Substance: DUPILUMAB
     Indication: Dermatitis atopic
     Dosage: 600 MG, 1X
     Route: 058
     Dates: start: 20230113, end: 20230113
  2. CLINDAMYCIN PHOSPHATE [Concomitant]
     Active Substance: CLINDAMYCIN PHOSPHATE
     Dosage: UNK
  3. TRIAMCINOLONE ACETONIDE [Concomitant]
     Active Substance: TRIAMCINOLONE ACETONIDE
     Dosage: UNK
  4. TRETINOIN [Concomitant]
     Active Substance: TRETINOIN
     Dosage: UNK
  5. DESONIDE [Concomitant]
     Active Substance: DESONIDE
     Dosage: UNK
  6. PIMECROLIMUS [Concomitant]
     Active Substance: PIMECROLIMUS
     Dosage: UNK

REACTIONS (2)
  - Injection site pain [Not Recovered/Not Resolved]
  - Dermatitis atopic [Not Recovered/Not Resolved]

NARRATIVE: CASE EVENT DATE: 20230113
